FAERS Safety Report 4464057-4 (Version None)
Quarter: 2004Q4

REPORT INFORMATION
  Report Type: 
  Country: None (occurrence: None)
  Receive Date: 20041001
  Receipt Date: 20040910
  Transmission Date: 20050328
  Serious: Yes (Other)
  Sender: FDA-Public Use
  Company Number: FR-JNJFOC-20040906349

PATIENT
  Sex: Female

DRUGS (2)
  1. RISPERDAL CONSTA [Suspect]
     Route: 030
  2. RISPERDAL [Suspect]
     Route: 049

REACTIONS (4)
  - GALACTORRHOEA [None]
  - HYPERPROLACTINAEMIA [None]
  - HYPOTHYROIDISM [None]
  - WEIGHT INCREASED [None]
